FAERS Safety Report 4936740-5 (Version None)
Quarter: 2006Q1

REPORT INFORMATION
  Report Type: 
  Country: None (occurrence: None)
  Receive Date: 20060302
  Receipt Date: 20060209
  Transmission Date: 20060701
  Serious: Yes (Life-Threatening, Hospitalization)
  Sender: FDA-Public Use
  Company Number: BE200602002031

PATIENT
  Age: 17 Year
  Sex: Female

DRUGS (1)
  1. OLANZAPINE [Suspect]
     Indication: SELF MUTILATION
     Dosage: ORAL
     Route: 048
     Dates: start: 20000101

REACTIONS (2)
  - DYSPHAGIA [None]
  - PNEUMONIA [None]
